FAERS Safety Report 15319620 (Version 1)
Quarter: 2018Q3

REPORT INFORMATION
  Report Type: Spontaneous
  Country: GB (occurrence: GB)
  Receive Date: 20180827
  Receipt Date: 20180827
  Transmission Date: 20181010
  Serious: Yes (Other)
  Sender: FDA-Public Use
  Company Number: GB-TEVA-2018-GB-947221

PATIENT
  Age: 57 Year
  Sex: Female
  Weight: 84 kg

DRUGS (12)
  1. SERTRALINE [Suspect]
     Active Substance: SERTRALINE HYDROCHLORIDE
     Route: 048
     Dates: start: 20180518, end: 20180525
  2. INFLIXIMAB [Concomitant]
     Active Substance: INFLIXIMAB
     Route: 065
  3. SERTRALINE [Suspect]
     Active Substance: SERTRALINE HYDROCHLORIDE
     Indication: DEPRESSION
     Dosage: INCREASED FROM 25MG TO 50MG TO 100MG
     Route: 048
     Dates: start: 20180525
  4. FOLIC ACID. [Concomitant]
     Active Substance: FOLIC ACID
     Route: 065
  5. SUMATRIPTAN SUCCINATE. [Concomitant]
     Active Substance: SUMATRIPTAN SUCCINATE
     Route: 065
  6. LOPERAMIDE [Concomitant]
     Active Substance: LOPERAMIDE
     Route: 065
  7. SERTRALINE [Suspect]
     Active Substance: SERTRALINE HYDROCHLORIDE
     Route: 048
     Dates: start: 20180726
  8. VITAMIN B12 [Concomitant]
     Active Substance: CYANOCOBALAMIN
  9. METHOTREXATE. [Concomitant]
     Active Substance: METHOTREXATE
     Route: 065
  10. LISINOPRIL. [Concomitant]
     Active Substance: LISINOPRIL
     Route: 065
  11. LANSOPRAZOLE. [Concomitant]
     Active Substance: LANSOPRAZOLE
     Route: 065
  12. COLESEVELAM [Concomitant]
     Active Substance: COLESEVELAM
     Route: 065

REACTIONS (7)
  - Haematochezia [Not Recovered/Not Resolved]
  - Nausea [Recovered/Resolved]
  - Insomnia [Not Recovered/Not Resolved]
  - Breast mass [Recovering/Resolving]
  - Breast enlargement [Not Recovered/Not Resolved]
  - Sexual dysfunction [Recovering/Resolving]
  - Breast pain [Recovering/Resolving]

NARRATIVE: CASE EVENT DATE: 20180620
